FAERS Safety Report 5457199-8 (Version None)
Quarter: 2007Q3

REPORT INFORMATION
  Report Type: 
  Country: None (occurrence: None)
  Receive Date: 20070918
  Receipt Date: 20070123
  Transmission Date: 20080115
  Serious: No
  Sender: FDA-Public Use
  Company Number: US-ASTRAZENECA-2007UW01429

PATIENT
  Age: 52 Year
  Sex: Female
  Weight: 103 kg

DRUGS (10)
  1. SEROQUEL [Suspect]
     Indication: BIPOLAR I DISORDER
     Dosage: 50-150 MG
     Route: 048
     Dates: start: 20050101
  2. DEPAKOTE [Concomitant]
  3. NIFEDIPINE [Concomitant]
  4. OMEPRAZOLE [Concomitant]
  5. SPIRONOLACTONE [Concomitant]
  6. VALPROIC ACID [Concomitant]
  7. ALBUTEROL [Concomitant]
  8. TRUSOPT [Concomitant]
  9. METOPROLOL SUCCINATE [Concomitant]
  10. DIPIVEFRIN HYDROCHLORIDE [Concomitant]

REACTIONS (4)
  - AMNESIA [None]
  - CONFUSIONAL STATE [None]
  - THERAPEUTIC RESPONSE UNEXPECTED [None]
  - WEIGHT INCREASED [None]
